FAERS Safety Report 13125456 (Version 1)
Quarter: 2017Q1

REPORT INFORMATION
  Report Type: Spontaneous
  Country: US (occurrence: US)
  Receive Date: 20170118
  Receipt Date: 20170118
  Transmission Date: 20170428
  Serious: No
  Sender: FDA-Public Use
  Company Number: US-GALDERMA-US16007229

PATIENT
  Sex: Male

DRUGS (1)
  1. SOOLANTRA [Suspect]
     Active Substance: IVERMECTIN
     Indication: ARTHROPOD BITE
     Dosage: 1%
     Route: 061

REACTIONS (2)
  - Off label use [Recovered/Resolved]
  - Intentional product use issue [Recovered/Resolved]
